FAERS Safety Report 18922924 (Version 1)
Quarter: 2021Q1

REPORT INFORMATION
  Report Type: Report from Study
  Country: GB (occurrence: JP)
  Receive Date: 20210222
  Receipt Date: 20210222
  Transmission Date: 20210420
  Serious: Yes (Death, Other)
  Sender: FDA-Public Use
  Company Number: JP-ASTELLAS-2021US006176

PATIENT
  Age: 75 Year
  Sex: Male

DRUGS (1)
  1. ERLOTINIB [Suspect]
     Active Substance: ERLOTINIB
     Indication: NON-SMALL CELL LUNG CANCER
     Dosage: 91100MG IN TOTAL, UNKNOWN FREQ.
     Route: 048
     Dates: start: 20171012

REACTIONS (8)
  - Sudden death [Fatal]
  - Chronic kidney disease [Not Recovered/Not Resolved]
  - Wrist fracture [Recovered/Resolved]
  - Spinal fracture [Not Recovered/Not Resolved]
  - Skin infection [Recovered/Resolved]
  - Hypertension [Recovered/Resolved]
  - Ventricular arrhythmia [Not Recovered/Not Resolved]
  - Wolff-Parkinson-White syndrome [Recovered/Resolved]

NARRATIVE: CASE EVENT DATE: 20171012
